FAERS Safety Report 20056576 (Version 1)
Quarter: 2021Q4

REPORT INFORMATION
  Report Type: Spontaneous
  Country: CN (occurrence: CN)
  Receive Date: 20211111
  Receipt Date: 20211111
  Transmission Date: 20220303
  Serious: Yes (Other)
  Sender: FDA-Public Use
  Company Number: CN-NOVARTISPH-NVSC2021CN255499

PATIENT

DRUGS (1)
  1. ELTROMBOPAG [Suspect]
     Active Substance: ELTROMBOPAG
     Indication: Thrombocytopenia
     Dosage: DOSE WAS INITIATED AT 25 MG OR 50 MG DAILY,THEN INCREASED BY 25 MG EVERY 2 WEEKS
     Route: 065

REACTIONS (1)
  - Graft versus host disease [Unknown]
